FAERS Safety Report 5054431-X (Version None)
Quarter: 2006Q3

REPORT INFORMATION
  Report Type: 
  Country: None (occurrence: None)
  Receive Date: 20060713
  Receipt Date: 20060628
  Transmission Date: 20061208
  Serious: Yes (Other)
  Sender: FDA-Public Use
  Company Number: 2006-DE-03304GD

PATIENT
  Age: 52 Year
  Sex: Male

DRUGS (4)
  1. FUROSEMIDE [Suspect]
     Indication: HYPERTENSION
     Dosage: 80 MG
  2. CAPTOPRIL [Suspect]
     Indication: HYPERTENSION
     Dosage: 75 MG
  3. LABETALOL HCL [Suspect]
     Indication: HYPERTENSION
     Dosage: 800 MG
  4. POTASSIUM (POTASSIUM) [Suspect]
     Indication: HYPERTENSION
     Dosage: 40 MEQ,

REACTIONS (5)
  - CARDIAC FAILURE CONGESTIVE [None]
  - HEART SOUNDS ABNORMAL [None]
  - HYPERTENSIVE CRISIS [None]
  - HYPOKALAEMIA [None]
  - PERNICIOUS ANAEMIA [None]
